FAERS Safety Report 9659600 (Version 5)
Quarter: 2014Q1

REPORT INFORMATION
  Report Type: Spontaneous
  Country: US (occurrence: None)
  Receive Date: 20131029
  Receipt Date: 20140210
  Transmission Date: 20141002
  Serious: Yes (Hospitalization, Other)
  Sender: FDA-Public Use
  Company Number: ADR-2013-01944

PATIENT
  Sex: Male

DRUGS (2)
  1. COMPOUNDED BACLOFEN [Suspect]
     Indication: MUSCLE SPASTICITY
     Dosage: 99.90MCG/DAY
     Dates: start: 20090513
  2. MORPHINE [Suspect]

REACTIONS (13)
  - Sepsis [None]
  - Muscle twitching [None]
  - Hallucination [None]
  - Drug level above therapeutic [None]
  - Hypotonia [None]
  - Performance status decreased [None]
  - Loss of control of legs [None]
  - Arthritis infective [None]
  - Muscle spasms [None]
  - Intervertebral disc degeneration [None]
  - Staphylococcal infection [None]
  - Muscle spasticity [None]
  - Knee arthroplasty [None]
